FAERS Safety Report 10090890 (Version 3)
Quarter: 2015Q3

REPORT INFORMATION
  Report Type: Spontaneous
  Country: US (occurrence: US)
  Receive Date: 20140421
  Receipt Date: 20150812
  Transmission Date: 20151125
  Serious: No
  Sender: FDA-Public Use
  Company Number: US-GILEAD-2012-0059308

PATIENT
  Age: 64 Year
  Sex: Female

DRUGS (4)
  1. LETAIRIS [Suspect]
     Active Substance: AMBRISENTAN
     Indication: AORTIC VALVE INCOMPETENCE
  2. LETAIRIS [Suspect]
     Active Substance: AMBRISENTAN
     Indication: HODGKIN^S DISEASE
  3. LETAIRIS [Suspect]
     Active Substance: AMBRISENTAN
     Indication: PULMONARY HYPERTENSION
     Dosage: 5 MG, UNK
     Route: 048
     Dates: start: 20090929
  4. LETAIRIS [Suspect]
     Active Substance: AMBRISENTAN
     Indication: HYPOXIA

REACTIONS (4)
  - Pericardial effusion [Unknown]
  - Dyspnoea [Unknown]
  - Oedema [Unknown]
  - Respiratory tract infection [Unknown]
